FAERS Safety Report 8022787-1 (Version None)
Quarter: 2012Q1

REPORT INFORMATION
  Report Type: 
  Country: None (occurrence: None)
  Receive Date: 20120104
  Receipt Date: 20111227
  Transmission Date: 20120608
  Serious: Yes (Other)
  Sender: FDA-Public Use
  Company Number: JP-ABBOTT-11P-087-0886834-00

PATIENT
  Sex: Female
  Weight: 47 kg

DRUGS (6)
  1. CARVEDILOL [Concomitant]
     Indication: CARDIAC FAILURE
     Route: 048
  2. OMEPRAZOLE [Concomitant]
     Indication: PRODUCT USED FOR UNKNOWN INDICATION
     Route: 048
  3. AZOSEMIDE [Concomitant]
     Indication: CARDIAC FAILURE
     Route: 048
  4. MESALAMINE [Concomitant]
     Indication: CROHN'S DISEASE
     Route: 048
  5. SPIRONOLACTONE [Concomitant]
     Indication: CARDIAC FAILURE
     Route: 048
  6. HUMIRA [Suspect]
     Indication: CROHN'S DISEASE
     Route: 058
     Dates: start: 20110117, end: 20110117

REACTIONS (1)
  - PANIC DISORDER [None]
